FAERS Safety Report 9515053 (Version 3)
Quarter: 2013Q4

REPORT INFORMATION
  Report Type: Report from Study
  Country: CA (occurrence: CA)
  Receive Date: 20130911
  Receipt Date: 20131003
  Transmission Date: 20140711
  Serious: Yes (Other)
  Sender: FDA-Public Use
  Company Number: CA-JNJFOC-20130619512

PATIENT
  Age: 36 Year
  Sex: Male
  Weight: 85 kg

DRUGS (4)
  1. REMICADE [Suspect]
     Indication: ANKYLOSING SPONDYLITIS
     Route: 042
     Dates: start: 20120919
  2. REMICADE [Suspect]
     Indication: ANKYLOSING SPONDYLITIS
     Dosage: PATIENT APPROXIMATELY RECEIVED 9 INFUSIONS
     Route: 042
     Dates: start: 20130625, end: 20130625
  3. TYLENOL [Concomitant]
     Indication: PREMEDICATION
     Route: 048
  4. ADVIL [Concomitant]
     Indication: ANKYLOSING SPONDYLITIS
     Dosage: 1600-2400 MG, 1 YEAR
     Route: 065

REACTIONS (5)
  - Hip surgery [Unknown]
  - Tremor [Recovered/Resolved]
  - Chills [Recovered/Resolved]
  - Infusion related reaction [Recovered/Resolved]
  - Adverse event [Unknown]
